FAERS Safety Report 7015719-6 (Version None)
Quarter: 2010Q3

REPORT INFORMATION
  Report Type: 
  Country: None (occurrence: None)
  Receive Date: 20100927
  Receipt Date: 20100715
  Transmission Date: 20110219
  Serious: No
  Sender: FDA-Public Use
  Company Number: US-ASTRAZENECA-2010SE33062

PATIENT
  Age: 27892 Day
  Sex: Female
  Weight: 67.1 kg

DRUGS (4)
  1. ARIMIDEX [Suspect]
     Indication: OESTROGEN THERAPY
     Route: 048
     Dates: start: 20100522, end: 20100702
  2. CRESTOR [Suspect]
     Indication: BLOOD CHOLESTEROL
     Route: 048
     Dates: start: 20100715
  3. PROTONIX [Concomitant]
     Indication: GASTROINTESTINAL DISORDER
  4. DIOVAN [Concomitant]
     Indication: BLOOD PRESSURE

REACTIONS (2)
  - BURNING SENSATION [None]
  - MUSCULOSKELETAL DISCOMFORT [None]
